FAERS Safety Report 13687819 (Version 1)
Quarter: 2017Q2

REPORT INFORMATION
  Report Type: Spontaneous
  Country: US (occurrence: US)
  Receive Date: 20170623
  Receipt Date: 20170623
  Transmission Date: 20170830
  Serious: Yes (Disabling)
  Sender: FDA-Public Use
  Company Number: None

PATIENT
  Age: 56 Year
  Sex: Female
  Weight: 62.55 kg

DRUGS (5)
  1. CRESTOR [Concomitant]
     Active Substance: ROSUVASTATIN CALCIUM
  2. OMEGA 3 [Concomitant]
     Active Substance: OMEGA-3 FATTY ACIDS
  3. VITAMIN D3 [Concomitant]
     Active Substance: CHOLECALCIFEROL
  4. OXYCODONE-ACETAMINOPHEN 5-325 [Suspect]
     Active Substance: ACETAMINOPHEN\OXYCODONE HYDROCHLORIDE
     Indication: ANALGESIC THERAPY
     Dosage: ?          QUANTITY:50 TABLET(S);?
     Route: 048
     Dates: start: 20170621, end: 20170622
  5. OXYCODONE-ACETAMINOPHEN 5-325 [Suspect]
     Active Substance: ACETAMINOPHEN\OXYCODONE HYDROCHLORIDE
     Indication: ENDODONTIC PROCEDURE
     Dosage: ?          QUANTITY:50 TABLET(S);?
     Route: 048
     Dates: start: 20170621, end: 20170622

REACTIONS (8)
  - Vomiting [None]
  - Fall [None]
  - Dehydration [None]
  - Dizziness [None]
  - Nausea [None]
  - Abasia [None]
  - Migraine [None]
  - Balance disorder [None]

NARRATIVE: CASE EVENT DATE: 20170622
